FAERS Safety Report 5124630-7 (Version None)
Quarter: 2006Q4

REPORT INFORMATION
  Report Type: 
  Country: None (occurrence: None)
  Receive Date: 20061011
  Receipt Date: 20061002
  Transmission Date: 20070319
  Serious: Yes (Hospitalization)
  Sender: FDA-Public Use
  Company Number: SE-BRISTOL-MYERS SQUIBB COMPANY-13526561

PATIENT
  Age: 80 Year
  Sex: Female

DRUGS (8)
  1. PRAVACHOL [Suspect]
  2. EZETROL [Suspect]
  3. RAMIPRIL [Concomitant]
  4. LANACRIST [Concomitant]
  5. IMPUGAN [Concomitant]
  6. METOPROLOL SUCCINATE [Concomitant]
  7. PLAVIX [Concomitant]
  8. SPIRONOLACTONE [Concomitant]

REACTIONS (5)
  - DEHYDRATION [None]
  - GASTROENTERITIS [None]
  - PAIN IN EXTREMITY [None]
  - RENAL FAILURE [None]
  - RHABDOMYOLYSIS [None]
